FAERS Safety Report 10949784 (Version 1)
Quarter: 2015Q1

REPORT INFORMATION
  Report Type: Spontaneous
  Country: US (occurrence: None)
  Receive Date: 20150226
  Receipt Date: 20150226
  Transmission Date: 20150721
  Serious: Yes (Hospitalization)
  Sender: FDA-Public Use
  Company Number: TPA2010A03509

PATIENT
  Age: 54 Year
  Sex: Female
  Weight: 174.77 kg

DRUGS (5)
  1. PAXIL [Concomitant]
     Active Substance: PAROXETINE HYDROCHLORIDE
  2. ACTOS [Suspect]
     Active Substance: PIOGLITAZONE HYDROCHLORIDE
     Indication: TYPE 2 DIABETES MELLITUS
     Route: 048
     Dates: start: 19990609
  3. ATIVAN [Concomitant]
     Active Substance: LORAZEPAM
  4. LIPITOR [Concomitant]
     Active Substance: ATORVASTATIN CALCIUM
  5. INSULIN (INSULIN) [Concomitant]
     Active Substance: INSULIN NOS

REACTIONS (5)
  - Cardiac failure congestive [None]
  - Blood glucose decreased [None]
  - Joint injury [None]
  - Weight increased [None]
  - Dyspnoea [None]

NARRATIVE: CASE EVENT DATE: 2005
